FAERS Safety Report 5587294-4 (Version None)
Quarter: 2008Q1

REPORT INFORMATION
  Report Type: 
  Country: None (occurrence: None)
  Receive Date: 20080110
  Receipt Date: 20080109
  Transmission Date: 20080703
  Serious: Yes (Other)
  Sender: FDA-Public Use
  Company Number: AU-BRISTOL-MYERS SQUIBB COMPANY-13965835

PATIENT
  Age: 71 Year
  Sex: Female
  Weight: 68 kg

DRUGS (5)
  1. SPRYCEL [Suspect]
     Indication: CHRONIC MYELOID LEUKAEMIA
     Dates: start: 20070821
  2. RABEPRAZOLE SODIUM [Suspect]
  3. METFORMIN HCL [Concomitant]
     Dates: start: 20020101
  4. DIAMICRON [Concomitant]
     Dosage: 30MG MANE
     Dates: start: 20020101
  5. LEVOTHYROXINE SODIUM [Concomitant]
     Dosage: 100MCG-MORNING,50MCG EVENING
     Dates: start: 20020101

REACTIONS (4)
  - DEHYDRATION [None]
  - HEPATIC FUNCTION ABNORMAL [None]
  - RENAL FAILURE [None]
  - VOMITING [None]
